FAERS Safety Report 7637069-7 (Version None)
Quarter: 2011Q3

REPORT INFORMATION
  Report Type: 
  Country: None (occurrence: None)
  Receive Date: 20110726
  Receipt Date: 20101207
  Transmission Date: 20111222
  Serious: Yes (Other)
  Sender: FDA-Public Use
  Company Number: US-MYLANLABS-2010S1022455

PATIENT
  Age: 27 Year
  Sex: Female

DRUGS (1)
  1. PAROXETINE HCL [Suspect]
     Indication: PANIC DISORDER
     Route: 048
     Dates: start: 20090201, end: 20090501

REACTIONS (3)
  - TINNITUS [None]
  - DEAFNESS NEUROSENSORY [None]
  - DRUG WITHDRAWAL SYNDROME [None]
